FAERS Safety Report 9735966 (Version 2)
Quarter: 2014Q1

REPORT INFORMATION
  Report Type: Spontaneous
  Country: US (occurrence: None)
  Receive Date: 20131204
  Receipt Date: 20140103
  Transmission Date: 20141002
  Serious: Yes (Hospitalization)
  Sender: FDA-Public Use
  Company Number: 2013MPI00773

PATIENT
  Age: 64 Year
  Sex: Male
  Weight: 94.1 kg

DRUGS (21)
  1. BRENTUXIMAB VEDOTIN (BRENTUXIMAB VEDOTIN) INJECTION [Suspect]
     Indication: HODGKIN^S DISEASE
     Route: 042
     Dates: start: 20130726, end: 20131101
  2. VINBLASTINE (VINBLASTINE SULFATE) INJECTION [Suspect]
     Indication: HODGKIN^S DISEASE
     Route: 042
     Dates: start: 20130726, end: 20131101
  3. DOXORUBICIN (DOXORUBICIN) INJECTION [Suspect]
     Indication: HODGKIN^S DISEASE
     Route: 042
     Dates: start: 20130726, end: 20131101
  4. DACARBAZINE (DACARBAZINE) INJECTION [Suspect]
     Indication: HODGKIN^S DISEASE
     Route: 042
     Dates: start: 20130726, end: 20131101
  5. ARIXTRA [Concomitant]
  6. ACYCLOVIR [Concomitant]
  7. NEXIUM [Concomitant]
  8. NEUPOGEN [Concomitant]
  9. ATIVAN [Concomitant]
  10. REGLAN [Concomitant]
  11. REMERON [Concomitant]
  12. K-DUR [Concomitant]
  13. PHENERGAN [Concomitant]
  14. ARMODAFINIL [Concomitant]
  15. CIPRO HC [Concomitant]
  16. DILAUDID [Concomitant]
  17. MIRALAX [Concomitant]
  18. SENNA [Concomitant]
  19. DOCUSATE [Concomitant]
  20. METOPROLOL [Concomitant]
  21. ATORVASTATIN [Concomitant]

REACTIONS (3)
  - Dehydration [None]
  - Malnutrition [None]
  - Failure to thrive [None]
